FAERS Safety Report 9656855 (Version 1)
Quarter: 2013Q4

REPORT INFORMATION
  Report Type: Spontaneous
  Country: FR (occurrence: FR)
  Receive Date: 20131030
  Receipt Date: 20131030
  Transmission Date: 20140711
  Serious: Yes (Other)
  Sender: FDA-Public Use
  Company Number: FR-PFIZER INC-2013305527

PATIENT
  Age: 46 Year
  Sex: Female

DRUGS (5)
  1. STEDIRIL [Suspect]
     Indication: CONTRACEPTION
     Dosage: UNK
     Route: 048
     Dates: end: 20121211
  2. STEDIRIL [Suspect]
     Dosage: UNK
     Route: 048
     Dates: start: 20130118, end: 20130205
  3. BI-PROFENID [Concomitant]
     Indication: TENDONITIS
     Dosage: 100 MG, UNK
     Route: 048
     Dates: end: 20120828
  4. PARIET [Concomitant]
     Indication: PROPHYLAXIS
     Dosage: UNK
     Route: 048
  5. AVLOCARDYL [Concomitant]
     Dosage: UNK
     Route: 048

REACTIONS (1)
  - Hepatitis acute [Recovered/Resolved]
